FAERS Safety Report 18150263 (Version 1)
Quarter: 2020Q3

REPORT INFORMATION
  Report Type: Spontaneous
  Country: US (occurrence: US)
  Receive Date: 20200814
  Receipt Date: 20200814
  Transmission Date: 20201103
  Serious: No
  Sender: FDA-Public Use
  Company Number: US-GLENMARK PHARMACEUTICALS-2020GMK047975

PATIENT

DRUGS (1)
  1. ROSUVASTATIN CALCIUM TABLETS 10 MG [Suspect]
     Active Substance: ROSUVASTATIN CALCIUM
     Indication: BLOOD CHOLESTEROL ABNORMAL
     Dosage: 10 MILLIGRAM, OD
     Route: 048
     Dates: start: 20200101, end: 2020

REACTIONS (1)
  - Burning mouth syndrome [Unknown]

NARRATIVE: CASE EVENT DATE: 2020
